FAERS Safety Report 8538181-0 (Version None)
Quarter: 2012Q3

REPORT INFORMATION
  Report Type: 
  Country: None (occurrence: None)
  Receive Date: 20120726
  Receipt Date: 20120705
  Transmission Date: 20120928
  Serious: No
  Sender: FDA-Public Use
  Company Number: US-009507513-1207USA001638

PATIENT

DRUGS (4)
  1. AZASITE [Suspect]
     Indication: CONJUNCTIVITIS
     Dosage: 2 DF, BID
     Route: 047
     Dates: start: 20120518
  2. VITAMINS (UNSPECIFIED) [Concomitant]
  3. AZASITE [Suspect]
     Dosage: 1 DF, QD
     Dates: start: 20120501
  4. HORMONES (UNSPECIFIED) [Concomitant]

REACTIONS (2)
  - EYE PRURITUS [None]
  - EYE IRRITATION [None]
